FAERS Safety Report 19168353 (Version 1)
Quarter: 2021Q2

REPORT INFORMATION
  Report Type: Spontaneous
  Country: US (occurrence: US)
  Receive Date: 20210421
  Receipt Date: 20210421
  Transmission Date: 20210717
  Serious: No
  Sender: FDA-Public Use
  Company Number: None

PATIENT
  Age: 60 Year
  Sex: Female
  Weight: 65.25 kg

DRUGS (2)
  1. ERTAPENEM. [Suspect]
     Active Substance: ERTAPENEM SODIUM
     Indication: URINARY TRACT INFECTION
     Route: 042
     Dates: start: 20210409, end: 20210416
  2. VELCADE [Concomitant]
     Active Substance: BORTEZOMIB
     Dates: start: 20210414, end: 20210414

REACTIONS (1)
  - Rash [None]

NARRATIVE: CASE EVENT DATE: 20210414
